FAERS Safety Report 24324993 (Version 1)
Quarter: 2024Q3

REPORT INFORMATION
  Report Type: Report from Study
  Country: MX (occurrence: MX)
  Receive Date: 20240916
  Receipt Date: 20240916
  Transmission Date: 20241017
  Serious: Yes (Other)
  Sender: NOVARTIS
  Company Number: MX-002147023-NVSC2024MX182291

PATIENT
  Age: 53 Year
  Sex: Female

DRUGS (3)
  1. KISQALI [Suspect]
     Active Substance: RIBOCICLIB
     Indication: Breast cancer metastatic
     Dosage: 200 MG, TID
     Route: 048
     Dates: start: 202404, end: 20240520
  2. KISQALI [Suspect]
     Active Substance: RIBOCICLIB
     Indication: Metastases to spine
     Dosage: 1 DOSAGE FORM, BID
     Route: 065
     Dates: start: 20240520
  3. LETROZOLE [Concomitant]
     Active Substance: LETROZOLE
     Indication: Product used for unknown indication
     Dosage: 2.5 MG
     Route: 065
     Dates: end: 20240723

REACTIONS (20)
  - Rectal haemorrhage [Recovered/Resolved]
  - Rectal haemorrhage [Unknown]
  - Dysphagia [Unknown]
  - Stomatitis [Recovered/Resolved]
  - Cheilitis [Recovered/Resolved]
  - Cheilitis [Not Recovered/Not Resolved]
  - Stomatitis [Not Recovered/Not Resolved]
  - Gastritis [Not Recovered/Not Resolved]
  - Abdominal pain upper [Unknown]
  - Taste disorder [Recovered/Resolved with Sequelae]
  - Dysgeusia [Unknown]
  - Decreased appetite [Unknown]
  - Diarrhoea [Not Recovered/Not Resolved]
  - Cold sweat [Unknown]
  - Weight decreased [Unknown]
  - Body temperature abnormal [Recovered/Resolved]
  - Visual impairment [Not Recovered/Not Resolved]
  - Anorectal discomfort [Unknown]
  - Skin fissures [Unknown]
  - Off label use [Unknown]

NARRATIVE: CASE EVENT DATE: 20240401
